FAERS Safety Report 7151068-3 (Version None)
Quarter: 2010Q4

REPORT INFORMATION
  Report Type: 
  Country: None (occurrence: None)
  Receive Date: 20101126
  Receipt Date: 20101112
  Transmission Date: 20110411
  Serious: Yes (Hospitalization)
  Sender: FDA-Public Use
  Company Number: 022128

PATIENT
  Age: 67 Year
  Sex: Male

DRUGS (5)
  1. OMEPRAZOLE [Suspect]
     Dosage: 20 MG QD,
  2. DILTIAZEM [Concomitant]
  3. ACETYLSALICYLIC ACID [Concomitant]
  4. LOSARTAN [Concomitant]
  5. SALMETEROL/FLUTICASONPROPIONAAT [Concomitant]

REACTIONS (5)
  - HYPOCALCAEMIA [None]
  - HYPOMAGNESAEMIA [None]
  - MUSCULAR WEAKNESS [None]
  - PARAESTHESIA [None]
  - TETANY [None]
